FAERS Safety Report 5370322-9 (Version None)
Quarter: 2007Q2

REPORT INFORMATION
  Report Type: 
  Country: None (occurrence: None)
  Receive Date: 20070626
  Receipt Date: 20061108
  Transmission Date: 20071010
  Serious: No
  Sender: FDA-Public Use
  Company Number: US-AMGEN-US198453

PATIENT
  Sex: Female
  Weight: 77.6 kg

DRUGS (12)
  1. ARANESP [Suspect]
     Indication: ANAEMIA
     Route: 058
     Dates: start: 20061005, end: 20061020
  2. CARDIZEM [Concomitant]
  3. CLONIDINE [Concomitant]
  4. LOPRESSOR [Concomitant]
  5. LOTENSIN [Concomitant]
  6. DIOVAN [Concomitant]
  7. LASIX [Concomitant]
  8. ASPIRIN [Concomitant]
  9. CATAPRES [Concomitant]
  10. LANTUS [Concomitant]
  11. HUMALOG [Concomitant]
  12. VITAMIN B-12 [Concomitant]

REACTIONS (2)
  - HYPERTENSION [None]
  - NAUSEA [None]
